FAERS Safety Report 24998412 (Version 1)
Quarter: 2025Q1

REPORT INFORMATION
  Report Type: Spontaneous
  Country: US (occurrence: US)
  Receive Date: 20250222
  Receipt Date: 20250222
  Transmission Date: 20250408
  Serious: No
  Sender: SANOFI AVENTIS
  Company Number: US-SA-2025SA044531

PATIENT
  Age: 33 Year
  Sex: Female

DRUGS (4)
  1. DUPIXENT [Suspect]
     Active Substance: DUPILUMAB
     Indication: Dermatitis atopic
     Route: 058
     Dates: start: 20240906, end: 20240906
  2. DUPIXENT [Suspect]
     Active Substance: DUPILUMAB
     Dosage: 300 MG, QOW
     Route: 058
     Dates: start: 20240920, end: 20250124
  3. RINVOQ [Concomitant]
     Active Substance: UPADACITINIB
     Dates: start: 20250124
  4. REZDIFFRA [Concomitant]
     Active Substance: RESMETIROM

REACTIONS (4)
  - Eczema [Recovered/Resolved]
  - Pruritus [Recovered/Resolved]
  - Drug ineffective [Unknown]
  - Therapeutic response decreased [Unknown]
